FAERS Safety Report 7378351-0 (Version None)
Quarter: 2011Q1

REPORT INFORMATION
  Report Type: 
  Country: None (occurrence: None)
  Receive Date: 20110328
  Receipt Date: 20110314
  Transmission Date: 20110831
  Serious: Yes (Hospitalization, Other)
  Sender: FDA-Public Use
  Company Number: US-ELI_LILLY_AND_COMPANY-US201103005306

PATIENT
  Sex: Male

DRUGS (3)
  1. HUMALOG [Suspect]
     Dates: start: 20090101
  2. HUMALOG [Suspect]
     Indication: DIABETES MELLITUS
     Dosage: UNK, AS NEEDED
     Route: 058
     Dates: start: 20090101
  3. LANTUS [Concomitant]
     Dosage: 8 U, 2/D

REACTIONS (6)
  - BLOOD GLUCOSE DECREASED [None]
  - VISUAL ACUITY REDUCED [None]
  - ROAD TRAFFIC ACCIDENT [None]
  - BLOOD GLUCOSE INCREASED [None]
  - MULTIPLE FRACTURES [None]
  - BRAIN INJURY [None]
